FAERS Safety Report 21317083 (Version 1)
Quarter: 2022Q3

REPORT INFORMATION
  Report Type: Spontaneous
  Country: US (occurrence: US)
  Receive Date: 20220911
  Receipt Date: 20220911
  Transmission Date: 20221027
  Serious: No
  Sender: FDA-Public Use
  Company Number: US-SA-SAC20220822001334

PATIENT
  Age: 48 Year
  Sex: Female
  Weight: 111.1 kg

DRUGS (1)
  1. DUPIXENT [Suspect]
     Active Substance: DUPILUMAB
     Indication: Asthma
     Dosage: 300 MG, QOW
     Route: 058
     Dates: start: 202206, end: 2022

REACTIONS (5)
  - Headache [Unknown]
  - Sleep disorder [Unknown]
  - Urticaria [Unknown]
  - Oral herpes [Unknown]
  - Drug hypersensitivity [Unknown]
